FAERS Safety Report 24899020 (Version 1)
Quarter: 2025Q1

REPORT INFORMATION
  Report Type: Spontaneous
  Country: FR (occurrence: FR)
  Receive Date: 20250129
  Receipt Date: 20250129
  Transmission Date: 20250409
  Serious: Yes (Other)
  Sender: SANOFI AVENTIS
  Company Number: None

PATIENT
  Age: 49 Year
  Sex: Male
  Weight: 90 kg

DRUGS (6)
  1. RIFADIN [Suspect]
     Active Substance: RIFAMPIN
     Indication: Skin ulcer
     Dosage: 900 MG, QD
     Route: 048
     Dates: start: 20241219, end: 20241231
  2. RIFADIN [Suspect]
     Active Substance: RIFAMPIN
     Indication: Staphylococcal infection
  3. RIFADIN [Suspect]
     Active Substance: RIFAMPIN
     Indication: Streptococcal infection
  4. LEVOFLOXACIN HEMIHYDRATE [Suspect]
     Active Substance: LEVOFLOXACIN
     Indication: Skin ulcer
     Dosage: 750 MG, QD (IN A SINGLE DOSE)
     Route: 048
     Dates: start: 20241219, end: 20241231
  5. LEVOFLOXACIN HEMIHYDRATE [Suspect]
     Active Substance: LEVOFLOXACIN
     Indication: Staphylococcal infection
  6. LEVOFLOXACIN HEMIHYDRATE [Suspect]
     Active Substance: LEVOFLOXACIN
     Indication: Streptococcal infection

REACTIONS (3)
  - Toxic skin eruption [Unknown]
  - Petechiae [Unknown]
  - Rash maculo-papular [Unknown]

NARRATIVE: CASE EVENT DATE: 20241231
